FAERS Safety Report 6099848-X (Version None)
Quarter: 2009Q1

REPORT INFORMATION
  Report Type: 
  Country: None (occurrence: None)
  Receive Date: 20090303
  Receipt Date: 20090226
  Transmission Date: 20090719
  Serious: Yes (Life-Threatening, Hospitalization, Other)
  Sender: FDA-Public Use
  Company Number: PHHY2009JP07034

PATIENT
  Age: 78 Year
  Sex: Female

DRUGS (2)
  1. TEGRETOL [Suspect]
     Indication: HYPOAESTHESIA
     Dosage: 200 MG/DAY
     Route: 048
     Dates: start: 20090212, end: 20090119
  2. TEGRETOL [Suspect]
     Indication: POSTOPERATIVE CARE

REACTIONS (8)
  - ABDOMINAL PAIN [None]
  - ARRHYTHMIA [None]
  - BRADYCARDIA [None]
  - CHEST PAIN [None]
  - ELECTROCARDIOGRAM P WAVE ABNORMAL [None]
  - HAEMATOCHEZIA [None]
  - HYPERKALAEMIA [None]
  - SICK SINUS SYNDROME [None]
